FAERS Safety Report 4411845-6 (Version None)
Quarter: 2004Q3

REPORT INFORMATION
  Report Type: 
  Country: None (occurrence: None)
  Receive Date: 20040730
  Receipt Date: 20040525
  Transmission Date: 20050211
  Serious: No
  Sender: FDA-Public Use
  Company Number: US-GLAXOSMITHKLINE-A0512077A

PATIENT
  Age: 85 Year
  Sex: Female

DRUGS (2)
  1. VENTOLIN [Suspect]
     Indication: ASTHMA
     Dosage: 2PUFF AT NIGHT
     Route: 055
     Dates: start: 20040519
  2. ZANTAC [Concomitant]

REACTIONS (3)
  - DIZZINESS [None]
  - DYSPEPSIA [None]
  - SWOLLEN TONGUE [None]
